FAERS Safety Report 5848882-0 (Version None)
Quarter: 2008Q3

REPORT INFORMATION
  Report Type: 
  Country: None (occurrence: None)
  Receive Date: 20080818
  Receipt Date: 20080806
  Transmission Date: 20090109
  Serious: Yes (Hospitalization)
  Sender: FDA-Public Use
  Company Number: GB-PFIZER INC-2008066502

PATIENT
  Age: 59 Year
  Sex: Male

DRUGS (4)
  1. SULFASALAZINE [Suspect]
     Indication: RHEUMATOID ARTHRITIS
     Route: 048
     Dates: start: 20080709, end: 20080720
  2. CO-CODAMOL [Concomitant]
  3. DEPO-MEDRONE [Concomitant]
  4. DICLOFENAC SODIUM [Concomitant]
     Route: 030

REACTIONS (10)
  - ARTHRALGIA [None]
  - CHILLS [None]
  - EYE PAIN [None]
  - HEADACHE [None]
  - HOT FLUSH [None]
  - LETHARGY [None]
  - MALAISE [None]
  - OROPHARYNGEAL PAIN [None]
  - PYREXIA [None]
  - RASH MACULAR [None]
